FAERS Safety Report 23234586 (Version 3)
Quarter: 2025Q1

REPORT INFORMATION
  Report Type: Spontaneous
  Country: DE (occurrence: DE)
  Receive Date: 20231128
  Receipt Date: 20250303
  Transmission Date: 20250409
  Serious: Yes (Other)
  Sender: ASTELLAS
  Company Number: DE-ASTELLAS-2023US035165

PATIENT
  Age: 67 Year
  Sex: Female

DRUGS (2)
  1. ENFORTUMAB VEDOTIN [Suspect]
     Active Substance: ENFORTUMAB VEDOTIN
     Indication: Bladder transitional cell carcinoma
     Route: 042
     Dates: start: 202103
  2. ENFORTUMAB VEDOTIN [Suspect]
     Active Substance: ENFORTUMAB VEDOTIN
     Route: 042
     Dates: start: 202105, end: 202203

REACTIONS (7)
  - Leukopenia [Unknown]
  - Peripheral sensory neuropathy [Unknown]
  - Rash [Unknown]
  - Pruritus [Unknown]
  - Dysgeusia [Unknown]
  - Myalgia [Unknown]
  - Fatigue [Recovering/Resolving]

NARRATIVE: CASE EVENT DATE: 20210101
